FAERS Safety Report 6682732-8 (Version None)
Quarter: 2010Q2

REPORT INFORMATION
  Report Type: 
  Country: None (occurrence: None)
  Receive Date: 20100415
  Receipt Date: 20100402
  Transmission Date: 20101027
  Serious: Yes (Hospitalization)
  Sender: FDA-Public Use
  Company Number: FR-ROCHE-679709

PATIENT
  Sex: Male
  Weight: 46 kg

DRUGS (18)
  1. METHOXY POLYETHYLENE GLYCOL-EPOETIN BETA [Suspect]
     Dosage: LAST DOSE PRIOR TO SAE: 20 NOVEMBER 2009
     Route: 042
     Dates: start: 20090826
  2. ALPRAZOLAM [Concomitant]
     Dosage: TDD: 1/D
     Dates: start: 20020925, end: 20100105
  3. BISOPROLOL [Concomitant]
     Dates: start: 20080513, end: 20100105
  4. WARFARIN SODIUM [Concomitant]
     Dosage: DRUG: WARFARINE
     Dates: start: 20080507, end: 20100105
  5. ROSUVASTATIN [Concomitant]
     Dosage: DRUG: ROSUVASTATINE
     Dates: start: 20090907
  6. OMEPRAZOLE [Concomitant]
     Dates: start: 20081221
  7. CALCIUM CARBONATE [Concomitant]
     Dosage: TDD: 1/DAY
     Dates: start: 20081221
  8. SEVELAMER [Concomitant]
     Dosage: TDD: 2/D
     Dates: start: 20071123
  9. CLONAZEPAM [Concomitant]
     Dates: start: 20091218, end: 20100105
  10. TRAMADOL CHLORHYDRATE [Concomitant]
     Dosage: DOSE: 100; FREQUENCY: PRN
     Dates: start: 20080609, end: 20100105
  11. RACECADOTRIL [Concomitant]
     Dates: start: 20050511, end: 20100105
  12. PARACETAMOL [Concomitant]
     Dates: start: 20070727
  13. POLYSTYRENE SULPHONATE [Concomitant]
     Dosage: DRUG: POLYSTYRENE SULFONATE SODIUM
     Dates: start: 20060104, end: 20091218
  14. ENOXAPARIN SODIUM [Concomitant]
     Dates: start: 19960609
  15. SACCHAROSE [Concomitant]
     Dosage: DRUG: SACCHAROSE FERRIQUE
     Dates: start: 20081006
  16. AMIODARONE HCL [Concomitant]
     Dosage: TDD: 1/D
     Dates: start: 20080513
  17. FLUNARIZINE [Concomitant]
     Dosage: TDD: 2 CP
     Dates: start: 20070104, end: 20100105
  18. ZOLPIDEM [Concomitant]
     Dosage: FREQUENCY: PM
     Dates: start: 20100119

REACTIONS (4)
  - CHOLECYSTITIS ACUTE [None]
  - NUTRITIONAL CONDITION ABNORMAL [None]
  - PNEUMONIA [None]
  - SEPTIC SHOCK [None]
